FAERS Safety Report 9493555 (Version 6)
Quarter: 2013Q4

REPORT INFORMATION
  Report Type: Spontaneous
  Country: US (occurrence: US)
  Receive Date: 20130902
  Receipt Date: 20131230
  Transmission Date: 20140711
  Serious: Yes (Other)
  Sender: FDA-Public Use
  Company Number: US-PFIZER INC-2013252071

PATIENT
  Age: 69 Year
  Sex: Female
  Weight: 74.83 kg

DRUGS (8)
  1. LYRICA [Suspect]
     Indication: NEURALGIA
     Dosage: 50 MG, 1X/DAY
     Dates: start: 201308, end: 20130910
  2. LYRICA [Suspect]
     Indication: TRIGEMINAL NEURALGIA
     Dosage: 150 MG, 1X/DAY
     Route: 048
     Dates: start: 201309, end: 20130921
  3. LYRICA [Suspect]
     Indication: HERPES ZOSTER
     Dosage: 50 MG, 1X/DAY
     Route: 048
     Dates: start: 20131001
  4. PRILOSEC [Concomitant]
     Indication: GASTROOESOPHAGEAL REFLUX DISEASE
     Dosage: 40 MG, 1X/DAY
  5. LEVOTHYROXINE [Concomitant]
     Indication: HYPOTHYROIDISM
     Dosage: 50 MG, 1X/DAY
     Route: 048
  6. PAROXETINE [Concomitant]
     Dosage: 40 MG, 1X/DAY
  7. PLAVIX [Concomitant]
     Dosage: UNK
  8. RAPAMUNE [Concomitant]
     Dosage: UNK

REACTIONS (15)
  - Off label use [Unknown]
  - Poisoning [Unknown]
  - Blindness unilateral [Recovered/Resolved]
  - Vision blurred [Recovered/Resolved]
  - Gait disturbance [Unknown]
  - Herpes zoster [Unknown]
  - Drug ineffective for unapproved indication [Unknown]
  - Tremor [Unknown]
  - Headache [Unknown]
  - Dyspnoea [Not Recovered/Not Resolved]
  - Lethargy [Unknown]
  - Disturbance in attention [Unknown]
  - Tinnitus [Unknown]
  - Dry eye [Unknown]
  - Lacrimal disorder [Unknown]
